FAERS Safety Report 22149040 (Version 1)
Quarter: 2023Q1

REPORT INFORMATION
  Report Type: Report from Study
  Country: US (occurrence: US)
  Receive Date: 20230328
  Receipt Date: 20230328
  Transmission Date: 20230418
  Serious: Yes (Other)
  Sender: FDA-Public Use
  Company Number: US-ABBVIE-4704606

PATIENT
  Sex: Male

DRUGS (26)
  1. VENCLEXTA [Suspect]
     Active Substance: VENETOCLAX
     Indication: Chronic lymphocytic leukaemia
     Route: 048
  2. VENCLEXTA [Suspect]
     Active Substance: VENETOCLAX
     Indication: Chronic lymphocytic leukaemia
     Route: 048
  3. JADENU [Concomitant]
     Active Substance: DEFERASIROX
     Indication: Product used for unknown indication
  4. PEPCID [Concomitant]
     Active Substance: FAMOTIDINE
     Indication: Product used for unknown indication
     Dosage: 20 MG (EXPIRED)
  5. ZYRTEC [Concomitant]
     Active Substance: CETIRIZINE HYDROCHLORIDE
     Indication: Product used for unknown indication
  6. Darbepoetin Alfa-Alburnin (ARANESP IJ) [Concomitant]
     Indication: Product used for unknown indication
  7. ROBITUSSIN (GUAIFENESIN) [Concomitant]
     Active Substance: GUAIFENESIN
     Indication: Product used for unknown indication
     Route: 048
  8. MIRALAX (packet ) [Concomitant]
     Indication: Product used for unknown indication
  9. ZYLOPRIM [Concomitant]
     Active Substance: ALLOPURINOL
     Indication: Product used for unknown indication
     Route: 048
  10. alum/mag hydrox.-simethicone [Concomitant]
     Indication: Product used for unknown indication
     Route: 048
  11. CALQUENCE [Concomitant]
     Active Substance: ACALABRUTINIB
     Indication: Product used for unknown indication
  12. SODIUM CHLORIDE [Concomitant]
     Active Substance: SODIUM CHLORIDE
     Indication: Product used for unknown indication
     Dosage: 0.9% IV SOLUTION 250 ML
  13. ZOVIRAX [Concomitant]
     Active Substance: ACYCLOVIR
     Indication: Product used for unknown indication
  14. MIRABEGRON [Concomitant]
     Active Substance: MIRABEGRON
     Indication: Product used for unknown indication
  15. LIPITOR [Concomitant]
     Active Substance: ATORVASTATIN CALCIUM
     Indication: Product used for unknown indication
  16. TYLENOL [Concomitant]
     Active Substance: ACETAMINOPHEN
     Indication: Product used for unknown indication
  17. MELATONIN [Concomitant]
     Active Substance: MELATONIN
     Indication: Product used for unknown indication
  18. MELATONIN [Concomitant]
     Active Substance: MELATONIN
     Indication: Product used for unknown indication
  19. LASIX [Concomitant]
     Active Substance: FUROSEMIDE
     Indication: Product used for unknown indication
  20. LASIX [Concomitant]
     Active Substance: FUROSEMIDE
     Indication: Product used for unknown indication
  21. SENOKOT [Concomitant]
     Active Substance: SENNOSIDES
     Indication: Product used for unknown indication
  22. ZOFRAN [Concomitant]
     Active Substance: ONDANSETRON HYDROCHLORIDE
     Indication: Product used for unknown indication
     Dosage: 4MG/2MI
  23. ZOFRAN [Concomitant]
     Active Substance: ONDANSETRON HYDROCHLORIDE
     Indication: Product used for unknown indication
  24. FLOMAX [Concomitant]
     Active Substance: TAMSULOSIN HYDROCHLORIDE
     Indication: Product used for unknown indication
  25. ipratropium-albuterol (COMBIVENT RESPIMAT) [Concomitant]
     Indication: Product used for unknown indication
     Dosage: RESPIRATORY (INHALATION)
  26. SODIUM BICARBONATE [Concomitant]
     Active Substance: SODIUM BICARBONATE
     Indication: Product used for unknown indication

REACTIONS (46)
  - Pneumonia [Unknown]
  - Congenital white blood cell disorder [Unknown]
  - Obesity [Unknown]
  - Neutropenia [Unknown]
  - Hypophosphataemia [Unknown]
  - Dehydration [Unknown]
  - Urinary tract infection [Unknown]
  - Postoperative abscess [Unknown]
  - Dyspnoea [Unknown]
  - Bronchitis [Unknown]
  - Sepsis [Unknown]
  - Pyrexia [Unknown]
  - Subdural haematoma [Unknown]
  - Hyperglycaemia [Unknown]
  - Anaemia [Unknown]
  - Thrombocytopenia [Unknown]
  - Pain in extremity [Unknown]
  - Hyperlipidaemia [Unknown]
  - Epistaxis [Unknown]
  - Otitis media acute [Unknown]
  - Pulmonary mass [Unknown]
  - Atrial fibrillation [Unknown]
  - Lymphadenopathy mediastinal [Unknown]
  - Diarrhoea [Unknown]
  - Dyspnoea [Unknown]
  - Pancytopenia [Unknown]
  - Essential hypertension [Unknown]
  - Sinusitis [Unknown]
  - Immunodeficiency [Unknown]
  - Anaemia [Unknown]
  - Metapneumovirus infection [Unknown]
  - Febrile neutropenia [Unknown]
  - Cough [Unknown]
  - Abdominal distension [Unknown]
  - Blood disorder [Unknown]
  - Cellulitis [Unknown]
  - Fatigue [Unknown]
  - Hypogammaglobulinaemia [Unknown]
  - Tumour lysis syndrome [Unknown]
  - Arthritis [Unknown]
  - Oedema peripheral [Unknown]
  - Cholecystitis [Unknown]
  - Infection [Unknown]
  - Scapholunate dissociation [Unknown]
  - Cardiac stress test abnormal [Unknown]
  - Chest X-ray abnormal [Unknown]
